FAERS Safety Report 5301810-9 (Version None)
Quarter: 2007Q2

REPORT INFORMATION
  Report Type: 
  Country: None (occurrence: None)
  Receive Date: 20070416
  Receipt Date: 20070416
  Transmission Date: 20071010
  Serious: Yes (Other)
  Sender: FDA-Public Use
  Company Number: None

PATIENT
  Sex: Female
  Weight: 63.9572 kg

DRUGS (1)
  1. CYMBALTA [Suspect]
     Indication: DEPRESSION
     Dosage: 30 MG 1 DAILY PO
     Route: 048
     Dates: start: 20070326, end: 20070408

REACTIONS (4)
  - ABNORMAL BEHAVIOUR [None]
  - ALCOHOLISM [None]
  - CAFFEINE CONSUMPTION [None]
  - JUDGEMENT IMPAIRED [None]
